FAERS Safety Report 14359500 (Version 1)
Quarter: 2018Q1

REPORT INFORMATION
  Report Type: Spontaneous
  Country: US (occurrence: US)
  Receive Date: 20180105
  Receipt Date: 20180105
  Transmission Date: 20180509
  Serious: No
  Sender: FDA-Public Use
  Company Number: US-TAKEDA-2017TUS027534

PATIENT
  Age: 80 Year
  Sex: Female

DRUGS (1)
  1. ENTYVIO [Suspect]
     Active Substance: VEDOLIZUMAB
     Indication: COLITIS ULCERATIVE
     Dosage: 300 MG, UNK
     Route: 042
     Dates: start: 20171205

REACTIONS (9)
  - Stupor [Unknown]
  - Dyspepsia [Unknown]
  - Cold sweat [Unknown]
  - Dizziness [Unknown]
  - Pain in extremity [Unknown]
  - Hypersomnia [Unknown]
  - Headache [Unknown]
  - Ear pain [Unknown]
  - Back pain [Unknown]

NARRATIVE: CASE EVENT DATE: 20171219
